FAERS Safety Report 17378137 (Version 2)
Quarter: 2020Q1

REPORT INFORMATION
  Report Type: Spontaneous
  Country: US (occurrence: US)
  Receive Date: 20200206
  Receipt Date: 20200330
  Transmission Date: 20200409
  Serious: Yes (Other)
  Sender: FDA-Public Use
  Company Number: US-ELI_LILLY_AND_COMPANY-US202001011895

PATIENT
  Age: 55 Year
  Sex: Female

DRUGS (1)
  1. TADALAFIL. [Suspect]
     Active Substance: TADALAFIL
     Indication: PULMONARY ARTERIAL HYPERTENSION
     Dosage: UNK, UNKNOWN
     Route: 065
     Dates: start: 20200122, end: 20200124

REACTIONS (3)
  - Atrial fibrillation [Unknown]
  - Hypersensitivity [Unknown]
  - Fluid retention [Unknown]

NARRATIVE: CASE EVENT DATE: 201905
